FAERS Safety Report 11833105 (Version 1)
Quarter: 2015Q4

REPORT INFORMATION
  Report Type: Spontaneous
  Country: UY (occurrence: UY)
  Receive Date: 20151214
  Receipt Date: 20151214
  Transmission Date: 20160305
  Serious: Yes (Other)
  Sender: FDA-Public Use
  Company Number: PHHY2009UY075028

PATIENT
  Age: 50 Year
  Sex: Male

DRUGS (3)
  1. GLIVEC [Suspect]
     Active Substance: IMATINIB MESYLATE
     Dosage: 400 MG, QD
     Route: 065
  2. GLIVEC [Suspect]
     Active Substance: IMATINIB MESYLATE
     Dosage: 100 MG, QD
     Route: 065
     Dates: start: 200901
  3. GLIVEC [Suspect]
     Active Substance: IMATINIB MESYLATE
     Indication: CHRONIC MYELOID LEUKAEMIA
     Dosage: 400 MG, QD
     Route: 065
     Dates: start: 20040501, end: 200812

REACTIONS (9)
  - Pancytopenia [Unknown]
  - Anaemia [Unknown]
  - No therapeutic response [Unknown]
  - Blast crisis in myelogenous leukaemia [Unknown]
  - Pyrexia [Unknown]
  - Pleural effusion [Recovering/Resolving]
  - Myelofibrosis [Unknown]
  - Thrombocytopenia [Unknown]
  - Infection [Recovering/Resolving]

NARRATIVE: CASE EVENT DATE: 200810
